FAERS Safety Report 10230789 (Version 2)
Quarter: 2014Q2

REPORT INFORMATION
  Report Type: Spontaneous
  Country: MX (occurrence: MX)
  Receive Date: 20140611
  Receipt Date: 20140611
  Transmission Date: 20141212
  Serious: Yes (Other)
  Sender: FDA-Public Use
  Company Number: MX-ELI_LILLY_AND_COMPANY-MX201406000345

PATIENT
  Sex: Female
  Weight: 1.9 kg

DRUGS (16)
  1. HUMALOG 25% LISPRO, 75% NPL [Suspect]
     Indication: GESTATIONAL DIABETES
     Dosage: 16 U, EACH MORNING
     Route: 064
     Dates: start: 20131009
  2. HUMALOG 25% LISPRO, 75% NPL [Suspect]
     Indication: GESTATIONAL DIABETES
     Dosage: 16 U, EACH MORNING
     Route: 064
     Dates: start: 20131009
  3. HUMALOG 25% LISPRO, 75% NPL [Suspect]
     Dosage: 12 U, EACH EVENING
     Route: 064
     Dates: start: 20131009
  4. HUMALOG 25% LISPRO, 75% NPL [Suspect]
     Dosage: 12 U, EACH EVENING
     Route: 064
     Dates: start: 20131009
  5. HUMALOG 25% LISPRO, 75% NPL [Suspect]
     Dosage: 16 U, EACH MORNING
     Route: 063
  6. HUMALOG 25% LISPRO, 75% NPL [Suspect]
     Dosage: 16 U, EACH MORNING
     Route: 063
  7. HUMALOG 25% LISPRO, 75% NPL [Suspect]
     Dosage: 12 U, EACH EVENING
     Route: 063
  8. HUMALOG 25% LISPRO, 75% NPL [Suspect]
     Dosage: 12 U, EACH EVENING
     Route: 063
  9. METHYLDOPA [Concomitant]
  10. METHYLDOPA [Concomitant]
  11. NIFEDIPINE [Concomitant]
  12. NIFEDIPINE [Concomitant]
  13. FOLIC ACID [Concomitant]
  14. FOLIC ACID [Concomitant]
  15. FERROUS SULFATE [Concomitant]
  16. FERROUS SULFATE [Concomitant]

REACTIONS (3)
  - Low birth weight baby [Unknown]
  - Foetal exposure during pregnancy [Recovered/Resolved]
  - Exposure during breast feeding [Unknown]
